FAERS Safety Report 9121961 (Version 1)
Quarter: 2013Q1

REPORT INFORMATION
  Report Type: Report from Study
  Country: CA (occurrence: CA)
  Receive Date: 20130114
  Receipt Date: 20130114
  Transmission Date: 20140127
  Serious: Yes (Hospitalization, Other)
  Sender: FDA-Public Use
  Company Number: CA-JNJFOC-20121110373

PATIENT
  Age: 22 Year
  Sex: Female
  Weight: 99 kg

DRUGS (1)
  1. REMICADE [Suspect]
     Indication: COLITIS ULCERATIVE
     Route: 042
     Dates: start: 20111212

REACTIONS (3)
  - Eclampsia [Unknown]
  - Hospitalisation [Recovered/Resolved]
  - Exposure during pregnancy [Recovered/Resolved]
